FAERS Safety Report 5194849-8 (Version None)
Quarter: 2006Q4

REPORT INFORMATION
  Report Type: 
  Country: None (occurrence: None)
  Receive Date: 20061227
  Receipt Date: 20061213
  Transmission Date: 20070319
  Serious: Yes (Hospitalization)
  Sender: FDA-Public Use
  Company Number: PAR_1160_2006

PATIENT
  Age: 25 Year
  Sex: Female
  Weight: 80.7403 kg

DRUGS (10)
  1. CYPROHEPTADINE HCL [Suspect]
     Indication: TREMOR
     Dosage: 4 MG PRN
     Dates: start: 20061116
  2. LEXAPRO [Suspect]
     Indication: DEPRESSION
     Dosage: 10 MG QDAY PO
     Route: 048
     Dates: start: 20061111, end: 20061112
  3. PROZAC [Suspect]
     Indication: DEPRESSION
     Dosage: 20 MG QDAY PO
     Route: 048
     Dates: start: 20060801, end: 20061001
  4. PROZAC [Suspect]
     Indication: DEPRESSION
     Dosage: 40 MG QDAY PO
     Route: 048
     Dates: start: 20061001, end: 20061110
  5. ZITHROMAX [Concomitant]
  6. DEPO-PROVERA [Concomitant]
  7. TYLENOL W/ CODEINE NO. 3 [Concomitant]
  8. TIZANIDINE HCL [Concomitant]
  9. WOMEN'S MULTIVITAMIN [Concomitant]
  10. PPD DISPOSABLE [Concomitant]

REACTIONS (26)
  - AFFECT LABILITY [None]
  - ANXIETY [None]
  - BLOOD PRESSURE SYSTOLIC INCREASED [None]
  - CHEST DISCOMFORT [None]
  - CLONUS [None]
  - CRYING [None]
  - DECREASED APPETITE [None]
  - DEPRESSION [None]
  - DIARRHOEA [None]
  - DISTURBANCE IN ATTENTION [None]
  - DIZZINESS POSTURAL [None]
  - DRUG EFFECT DECREASED [None]
  - DYSPHEMIA [None]
  - DYSURIA [None]
  - FATIGUE [None]
  - FEELING ABNORMAL [None]
  - HYPERREFLEXIA [None]
  - HYPERSOMNIA [None]
  - INSOMNIA [None]
  - MALAISE [None]
  - MEMORY IMPAIRMENT [None]
  - MUSCLE RIGIDITY [None]
  - NAUSEA [None]
  - SEROTONIN SYNDROME [None]
  - THINKING ABNORMAL [None]
  - TREMOR [None]
